FAERS Safety Report 7317790-0 (Version None)
Quarter: 2011Q1

REPORT INFORMATION
  Report Type: 
  Country: None (occurrence: None)
  Receive Date: 20110226
  Receipt Date: 20101210
  Transmission Date: 20110831
  Serious: No
  Sender: FDA-Public Use
  Company Number: US-ALLERGAN-1016141US

PATIENT
  Sex: Female

DRUGS (4)
  1. SUDAFED 12 HOUR [Concomitant]
     Dosage: UNK
     Dates: start: 20101210
  2. COLD MEDICINE [Concomitant]
     Dosage: UNK
     Dates: start: 20101209
  3. PSP EYE CREAM [Concomitant]
     Dosage: UNK
     Route: 061
  4. BOTOX COSMETIC [Suspect]
     Indication: SKIN WRINKLING
     Dosage: UNK

REACTIONS (2)
  - INJECTION SITE SWELLING [None]
  - INJECTION SITE ERYTHEMA [None]
